FAERS Safety Report 9904695 (Version 1)
Quarter: 2014Q1

REPORT INFORMATION
  Report Type: Spontaneous
  Country: FI (occurrence: FI)
  Receive Date: 20140218
  Receipt Date: 20140218
  Transmission Date: 20141002
  Serious: No
  Sender: FDA-Public Use
  Company Number: FI-JNJFOC-20140203141

PATIENT
  Age: 75 Year
  Sex: Male

DRUGS (4)
  1. DUROGESIC [Suspect]
     Indication: PAIN
     Route: 062
  2. DUROGESIC [Suspect]
     Indication: PAIN
     Route: 062
  3. DUROGESIC [Suspect]
     Indication: PAIN
     Route: 062
  4. PANACOD [Concomitant]
     Route: 065

REACTIONS (8)
  - Inappropriate schedule of drug administration [Unknown]
  - Wrong technique in drug usage process [Unknown]
  - Drug administered at inappropriate site [Unknown]
  - Pain [Unknown]
  - Application site vesicles [Unknown]
  - Application site irritation [Unknown]
  - Drug effect decreased [Unknown]
  - Product adhesion issue [Unknown]
